FAERS Safety Report 5079634-X (Version None)
Quarter: 2006Q3

REPORT INFORMATION
  Report Type: 
  Country: None (occurrence: None)
  Receive Date: 20060808
  Receipt Date: 20060726
  Transmission Date: 20061208
  Serious: Yes (Hospitalization)
  Sender: FDA-Public Use
  Company Number: 2006S1000175

PATIENT
  Age: 67 Year
  Sex: Female
  Weight: 69.99 kg

DRUGS (2)
  1. ACITRETIN [Suspect]
     Indication: SKIN DISORDER
     Dosage: 25 MG; QD; PO
     Route: 048
     Dates: start: 20060501, end: 20060501
  2. METICORTEN [Concomitant]

REACTIONS (11)
  - CONVULSION [None]
  - DIARRHOEA [None]
  - ERYTHEMA [None]
  - LIVER DISORDER [None]
  - MYOCARDIAL INFARCTION [None]
  - OEDEMA [None]
  - PULMONARY EMBOLISM [None]
  - RASH [None]
  - RENAL DISORDER [None]
  - SKIN REACTION [None]
  - SYNCOPE [None]
